FAERS Safety Report 23197724 (Version 2)
Quarter: 2024Q1

REPORT INFORMATION
  Report Type: Report from Study
  Country: US (occurrence: US)
  Receive Date: 20231117
  Receipt Date: 20240125
  Transmission Date: 20240410
  Serious: Yes (Hospitalization)
  Sender: FDA-Public Use
  Company Number: US-002147023-NVSC2023US236545

PATIENT
  Age: 69 Year
  Sex: Female

DRUGS (1)
  1. MAYZENT [Suspect]
     Active Substance: SIPONIMOD
     Indication: Relapsing-remitting multiple sclerosis
     Dosage: 1 MG, QD
     Route: 048
     Dates: start: 2021

REACTIONS (2)
  - Biliary sepsis [Unknown]
  - Memory impairment [Unknown]

NARRATIVE: CASE EVENT DATE: 20231022
